FAERS Safety Report 9655961 (Version 2)
Quarter: 2013Q4

REPORT INFORMATION
  Report Type: Report from Study
  Country: CA (occurrence: CA)
  Receive Date: 20131030
  Receipt Date: 20131030
  Transmission Date: 20140711
  Serious: Yes (Other)
  Sender: FDA-Public Use
  Company Number: CA-ROCHE-1271566

PATIENT
  Age: 43 Year
  Sex: Female
  Weight: 56.7 kg

DRUGS (10)
  1. RITUXAN [Suspect]
     Indication: POLYMYOSITIS
     Route: 042
     Dates: start: 20120531
  2. MYCOPHENOLATE MOFETIL [Suspect]
     Indication: PRODUCT USED FOR UNKNOWN INDICATION
     Route: 065
  3. BENADRYL (CANADA) [Suspect]
     Indication: INFUSION RELATED REACTION
     Route: 042
     Dates: start: 20131018
  4. PREDNISONE [Concomitant]
  5. LYRICA [Concomitant]
  6. RISEDRONATE [Concomitant]
  7. ADVAIR [Concomitant]
  8. VENTOLIN [Concomitant]
  9. DICETEL [Concomitant]
  10. IVIG [Concomitant]
     Dosage: FOR 2 DAYS
     Route: 065

REACTIONS (5)
  - Infusion related reaction [Recovered/Resolved]
  - Migraine [Recovered/Resolved]
  - Rheumatoid arthritis [Recovered/Resolved]
  - Polymyositis [Recovered/Resolved]
  - Somnolence [Unknown]
